FAERS Safety Report 13023279 (Version 1)
Quarter: 2016Q4

REPORT INFORMATION
  Report Type: Spontaneous
  Country: US (occurrence: US)
  Receive Date: 20161213
  Receipt Date: 20161213
  Transmission Date: 20170207
  Serious: Yes (Other)
  Sender: FDA-Public Use
  Company Number: US-NEOS THERAPEUTICS, LP-2016NEO00059

PATIENT
  Age: 36 Year
  Sex: Male

DRUGS (2)
  1. AMPHETAMINE [Suspect]
     Active Substance: AMPHETAMINE
     Route: 065
  2. DEXTROAMPHETAMINE. [Suspect]
     Active Substance: DEXTROAMPHETAMINE
     Route: 065

REACTIONS (5)
  - Cerebral haemorrhage [Unknown]
  - Drug abuse [Unknown]
  - Seizure [Unknown]
  - Coma [Unknown]
  - Clonus [Unknown]
